FAERS Safety Report 22347951 (Version 2)
Quarter: 2023Q2

REPORT INFORMATION
  Report Type: Spontaneous
  Country: FR (occurrence: FR)
  Receive Date: 20230522
  Receipt Date: 20230608
  Transmission Date: 20230722
  Serious: Yes (Death, Other)
  Sender: FDA-Public Use
  Company Number: FR-SERVIER-S23004525

PATIENT
  Age: 68 Year
  Sex: Male
  Weight: 63 kg

DRUGS (6)
  1. AZACITIDINE [Suspect]
     Active Substance: AZACITIDINE
     Indication: Acute myeloid leukaemia recurrent
     Dosage: UNK
     Route: 065
     Dates: start: 20221121
  2. POSACONAZOLE [Suspect]
     Active Substance: POSACONAZOLE
     Indication: Prophylaxis
     Dosage: 300 MILLIGRAM, ONCE A DAY
     Route: 065
     Dates: start: 20211021
  3. IVOSIDENIB [Suspect]
     Active Substance: IVOSIDENIB
     Indication: Acute myeloid leukaemia recurrent
     Dosage: 500 MILLIGRAM, ONCE A DAY
     Route: 048
     Dates: start: 20221015, end: 20230131
  4. AMOXICILLIN [Concomitant]
     Active Substance: AMOXICILLIN
     Indication: Prophylaxis
     Dosage: 1000 MILLIGRAM, ONCE A DAY (500 MG, BID)
     Route: 065
     Dates: start: 20211021
  5. HYDROXYUREA [Concomitant]
     Active Substance: HYDROXYUREA
     Indication: Acute myeloid leukaemia recurrent
     Dosage: UNK
     Route: 065
     Dates: start: 202211
  6. VALACYCLOVIR HYDROCHLORIDE [Concomitant]
     Active Substance: VALACYCLOVIR HYDROCHLORIDE
     Indication: Prophylaxis
     Dosage: 1000 MILLIGRAM, ONCE A DAY (500 MG, BID)
     Route: 065
     Dates: start: 20211021

REACTIONS (6)
  - Drug ineffective [Fatal]
  - Disease progression [Fatal]
  - Cytopenia [Not Recovered/Not Resolved]
  - Product use issue [Recovered/Resolved]
  - Incorrect dose administered [Recovered/Resolved]
  - Off label use [Recovered/Resolved]

NARRATIVE: CASE EVENT DATE: 20221015
